FAERS Safety Report 5487783-7 (Version None)
Quarter: 2007Q3

REPORT INFORMATION
  Report Type: 
  Country: None (occurrence: None)
  Receive Date: 20070927
  Receipt Date: 20070829
  Transmission Date: 20080115
  Serious: Yes (Other)
  Sender: FDA-Public Use
  Company Number: A03200705368

PATIENT
  Sex: Male

DRUGS (1)
  1. AMBIEN CR - ZOLPIDEM TARTRATE - TABLET [Suspect]
     Dosage: ORAL
     Route: 048
     Dates: end: 20070824

REACTIONS (2)
  - HYPERSENSITIVITY [None]
  - THROAT TIGHTNESS [None]
